FAERS Safety Report 26023603 (Version 1)
Quarter: 2025Q4

REPORT INFORMATION
  Report Type: Report from Study
  Country: EU (occurrence: EU)
  Receive Date: 20251111
  Receipt Date: 20251111
  Transmission Date: 20260118
  Serious: Yes (Death, Hospitalization)
  Sender: ABBVIE
  Company Number: EU-ABBVIE-6497827

PATIENT
  Age: 72 Year
  Sex: Male
  Weight: 85 kg

DRUGS (2)
  1. CARBIDOPA\LEVODOPA [Suspect]
     Active Substance: CARBIDOPA\LEVODOPA
     Indication: Parkinson^s disease
     Route: 050
     Dates: start: 20120307
  2. CARBIDOPA\LEVODOPA [Suspect]
     Active Substance: CARBIDOPA\LEVODOPA
     Route: 050
     Dates: start: 20251029

REACTIONS (12)
  - Death [Fatal]
  - Abdominal pain upper [Recovering/Resolving]
  - Stoma site erythema [Unknown]
  - Device issue [Unknown]
  - Stoma site discharge [Unknown]
  - Complication associated with device [Unknown]
  - Incorrect route of product administration [Unknown]
  - Stoma site odour [Unknown]
  - Embedded device [Recovering/Resolving]
  - Wound haemorrhage [Recovering/Resolving]
  - Wound dehiscence [Recovering/Resolving]
  - Intra-abdominal haematoma [Unknown]

NARRATIVE: CASE EVENT DATE: 20250101
